FAERS Safety Report 6902841-5 (Version None)
Quarter: 2010Q3

REPORT INFORMATION
  Report Type: 
  Country: None (occurrence: None)
  Receive Date: 20100803
  Receipt Date: 20080611
  Transmission Date: 20110219
  Serious: No
  Sender: FDA-Public Use
  Company Number: US-PFIZER INC-2008049809

PATIENT
  Sex: Female
  Weight: 74.5 kg

DRUGS (5)
  1. LYRICA [Suspect]
     Indication: PAIN
     Dates: start: 20080610
  2. OXYCODONE [Concomitant]
  3. OXYCONTIN [Concomitant]
  4. CARISOPRODOL [Concomitant]
  5. DIAZEPAM [Concomitant]

REACTIONS (2)
  - HEAD DISCOMFORT [None]
  - LACRIMATION INCREASED [None]
